FAERS Safety Report 20088159 (Version 2)
Quarter: 2021Q4

REPORT INFORMATION
  Report Type: Report from Study
  Country: SG (occurrence: SG)
  Receive Date: 20211118
  Receipt Date: 20211125
  Transmission Date: 20220303
  Serious: Yes (Other)
  Sender: FDA-Public Use
  Company Number: SG-JNJFOC-20211129109

PATIENT
  Age: 29 Year
  Sex: Female
  Weight: 36.5 kg

DRUGS (18)
  1. SIMPONI [Suspect]
     Active Substance: GOLIMUMAB
     Indication: Ankylosing spondylitis
     Route: 042
     Dates: start: 20201106, end: 20210507
  2. CODEINE PHOSPHATE [Concomitant]
     Active Substance: CODEINE PHOSPHATE
     Indication: Pain
  3. PROCHLORPERAZINE MALEATE [Concomitant]
     Active Substance: PROCHLORPERAZINE MALEATE
     Indication: Headache
  4. ADAPALENE [Concomitant]
     Active Substance: ADAPALENE
     Route: 061
  5. CLINDAMYCIN [Concomitant]
     Active Substance: CLINDAMYCIN
     Route: 061
  6. HYDROCORTISONE [Concomitant]
     Active Substance: HYDROCORTISONE
     Route: 061
  7. ETORICOXIB [Concomitant]
     Active Substance: ETORICOXIB
     Indication: Pain
  8. GABAPENTIN [Concomitant]
     Active Substance: GABAPENTIN
  9. ALVERINE CITRATE\RACEMETHIONINE [Concomitant]
     Active Substance: ALVERINE CITRATE\RACEMETHIONINE
     Dosage: ALVERINE 60MG, SIMETICONE 300MG
  10. MEFENAMIC ACID [Concomitant]
     Active Substance: MEFENAMIC ACID
     Indication: Pain
  11. ACETAMINOPHEN [Concomitant]
     Active Substance: ACETAMINOPHEN
     Indication: Pain
  12. ACETAMINOPHEN [Concomitant]
     Active Substance: ACETAMINOPHEN
     Indication: Pyrexia
  13. PRUCALOPRIDE [Concomitant]
     Active Substance: PRUCALOPRIDE
  14. ALVERINE CITRATE\RACEMETHIONINE [Concomitant]
     Active Substance: ALVERINE CITRATE\RACEMETHIONINE
     Dosage: ALVERINE 60MG, SIMETICONE 300MG
  15. ESOMEPRAZOLE [Concomitant]
     Active Substance: ESOMEPRAZOLE
  16. METOCLOPRAMIDE [Concomitant]
     Active Substance: METOCLOPRAMIDE
  17. OMEPRAZOLE [Concomitant]
     Active Substance: OMEPRAZOLE
  18. DIPHENHYDRAMINE [Concomitant]
     Active Substance: DIPHENHYDRAMINE
     Dosage: GIVEN 30 MINS BEFORE IV GOLIMUMAB
     Route: 065

REACTIONS (3)
  - Glioma [Recovering/Resolving]
  - Off label use [Unknown]
  - Product use issue [Unknown]

NARRATIVE: CASE EVENT DATE: 20201106
